FAERS Safety Report 5745074-0 (Version None)
Quarter: 2008Q2

REPORT INFORMATION
  Report Type: 
  Country: None (occurrence: None)
  Receive Date: 20080521
  Receipt Date: 20080509
  Transmission Date: 20081010
  Serious: Yes (Death, Other)
  Sender: FDA-Public Use
  Company Number: US-BRISTOL-MYERS SQUIBB COMPANY-14186373

PATIENT
  Sex: Female

DRUGS (10)
  1. ESTRACE [Suspect]
  2. PREMARIN [Suspect]
  3. PREMPRO [Suspect]
  4. PREMPHASE 14/14 [Suspect]
  5. MEDROXYPROGESTERONE ACETATE [Suspect]
  6. ESTRATEST [Suspect]
  7. ESTRATAB [Suspect]
  8. CYCRIN [Suspect]
  9. PROVERA [Suspect]
  10. PROGESTIN INJ [Suspect]

REACTIONS (17)
  - ASTHMA [None]
  - BILIARY TRACT DISORDER [None]
  - BREAST CANCER [None]
  - CEREBROVASCULAR ACCIDENT [None]
  - CHOLELITHIASIS [None]
  - DEATH [None]
  - DEEP VEIN THROMBOSIS [None]
  - DEMENTIA ALZHEIMER'S TYPE [None]
  - GALLBLADDER CANCER [None]
  - LIVER INJURY [None]
  - MYOCARDIAL INFARCTION [None]
  - NOSOPHOBIA [None]
  - OVARIAN CANCER [None]
  - PULMONARY EMBOLISM [None]
  - SCLERODERMA [None]
  - SYSTEMIC LUPUS ERYTHEMATOSUS [None]
  - VASCULAR DEMENTIA [None]
